FAERS Safety Report 4347638-8 (Version None)
Quarter: 2004Q2

REPORT INFORMATION
  Report Type: 
  Country: None (occurrence: None)
  Receive Date: 20040422
  Receipt Date: 20040408
  Transmission Date: 20050107
  Serious: Yes (Hospitalization, Other)
  Sender: FDA-Public Use
  Company Number: USA040464250

PATIENT
  Age: 43 Year
  Sex: Female
  Weight: 195 kg

DRUGS (8)
  1. HUMULIN 70/30 [Suspect]
     Dosage: 60 U/1 IN THE EVENING
     Dates: start: 20010101
  2. HUMULIN N [Suspect]
     Dates: start: 19910101
  3. HUMULIN L [Suspect]
  4. HUMULIN R [Suspect]
  5. HUMALOG [Suspect]
     Dates: start: 20040201
  6. PIOGLITAZONE HCL [Concomitant]
  7. ROSIGLITAZONE MALEATE [Concomitant]
  8. TROGLITAZONE [Concomitant]

REACTIONS (5)
  - DIABETES MELLITUS INADEQUATE CONTROL [None]
  - DIABETES MELLITUS INSULIN-DEPENDENT [None]
  - INJECTION SITE MASS [None]
  - PANCREATIC INSUFFICIENCY [None]
  - PANCREATITIS [None]
